FAERS Safety Report 7759251-0 (Version None)
Quarter: 2011Q3

REPORT INFORMATION
  Report Type: 
  Country: None (occurrence: None)
  Receive Date: 20110915
  Receipt Date: 20110907
  Transmission Date: 20111222
  Serious: Yes (Hospitalization)
  Sender: FDA-Public Use
  Company Number: 2011SP042287

PATIENT
  Age: 69 Year
  Sex: Female

DRUGS (4)
  1. ZOFRAN [Concomitant]
  2. BACTRIM DS [Concomitant]
  3. TEMOZOLOMIDE [Suspect]
     Indication: GLIOBLASTOMA
     Dosage: 125 MG;QD;PO
     Route: 048
     Dates: start: 20110714, end: 20110823
  4. COMPAZINE [Concomitant]

REACTIONS (6)
  - INCOHERENT [None]
  - CONVULSION [None]
  - BRAIN OEDEMA [None]
  - CENTRAL NERVOUS SYSTEM NECROSIS [None]
  - UNRESPONSIVE TO STIMULI [None]
  - FALL [None]
